FAERS Safety Report 5063597-7 (Version None)
Quarter: 2006Q3

REPORT INFORMATION
  Report Type: 
  Country: None (occurrence: None)
  Receive Date: 20060727
  Receipt Date: 20060706
  Transmission Date: 20061208
  Serious: Yes (Hospitalization)
  Sender: FDA-Public Use
  Company Number: PT-SANOFI-SYNTHELABO-A01200605247

PATIENT
  Age: 45 Year
  Sex: Male

DRUGS (6)
  1. FLUOROURACIL [Concomitant]
     Dosage: UNK
     Route: 042
     Dates: start: 20060703
  2. LEVOFOLINATE [Concomitant]
     Dosage: UNK
     Route: 042
     Dates: start: 20060703
  3. ACETAMINOPHEN [Concomitant]
     Indication: PAIN
     Dosage: UNK
     Route: 065
  4. GABAPENTIN [Concomitant]
     Indication: PAIN
     Dosage: UNK
     Route: 065
  5. PHENTANYL TRANSDERMIC [Concomitant]
     Indication: PAIN
     Dosage: UNK
     Route: 062
  6. ELOXATIN [Suspect]
     Indication: RECTAL CANCER METASTATIC
     Dosage: UNK
     Route: 042
     Dates: start: 20060703, end: 20060703

REACTIONS (1)
  - CONVULSION [None]
